FAERS Safety Report 16687692 (Version 1)
Quarter: 2019Q3

REPORT INFORMATION
  Report Type: Spontaneous
  Country: US (occurrence: None)
  Receive Date: 20190809
  Receipt Date: 20190809
  Transmission Date: 20191004
  Serious: Yes (Other)
  Sender: FDA-Public Use
  Company Number: 201907USGW2271

PATIENT
  Age: 15 Year
  Sex: Female
  Weight: 33.3 kg

DRUGS (5)
  1. KLONOPIN [Concomitant]
     Active Substance: CLONAZEPAM
  2. LAMICTAL [Concomitant]
     Active Substance: LAMOTRIGINE
  3. NEXIUM I.V. [Concomitant]
     Active Substance: ESOMEPRAZOLE SODIUM
  4. EPIDIOLEX [Suspect]
     Active Substance: CANNABIDIOL
     Indication: EPILEPSY
     Dosage: 15 MG/KG/DAY QD
     Route: 048
     Dates: start: 2018
  5. ONFI [Concomitant]
     Active Substance: CLOBAZAM

REACTIONS (2)
  - Neutropenia [None]
  - Leukopenia [None]

NARRATIVE: CASE EVENT DATE: 20180808
